FAERS Safety Report 19676422 (Version 1)
Quarter: 2021Q3

REPORT INFORMATION
  Report Type: Report from Study
  Country: None (occurrence: US)
  Receive Date: 20210810
  Receipt Date: 20210810
  Transmission Date: 20211014
  Serious: Yes (Other)
  Sender: FDA-Public Use
  Company Number: US-ABBVIE-21K-163-4024959-00

PATIENT
  Sex: Female

DRUGS (1)
  1. HUMIRA [Suspect]
     Active Substance: ADALIMUMAB
     Indication: PSORIASIS
     Route: 058

REACTIONS (6)
  - Psoriasis [Recovering/Resolving]
  - Eye haemorrhage [Unknown]
  - Inappropriate schedule of product administration [Unknown]
  - Macular fibrosis [Not Recovered/Not Resolved]
  - Hypertension [Unknown]
  - Dizziness [Unknown]
